FAERS Safety Report 10628564 (Version 2)
Quarter: 2014Q4

REPORT INFORMATION
  Report Type: Spontaneous
  Country: US (occurrence: US)
  Receive Date: 20141205
  Receipt Date: 20141205
  Transmission Date: 20150529
  Serious: No
  Sender: FDA-Public Use
  Company Number: US-BRISTOL-MYERS SQUIBB COMPANY-20326583

PATIENT
  Age: 59 Year
  Sex: Female

DRUGS (1)
  1. KOMBIGLYZE XR [Suspect]
     Active Substance: METFORMIN HYDROCHLORIDE\SAXAGLIPTIN HYDROCHLORIDE
     Dosage: 1 DF=2.5/1000MG TABLET

REACTIONS (3)
  - Gastroenteritis viral [Unknown]
  - Drug ineffective [Unknown]
  - Vomiting [Unknown]
